FAERS Safety Report 8962846 (Version 1)
Quarter: 2012Q4

REPORT INFORMATION
  Report Type: 
  Country: BE (occurrence: BE)
  Receive Date: 20121213
  Receipt Date: 20121213
  Transmission Date: 20130627
  Serious: Yes (Death)
  Sender: FDA-Public Use
  Company Number: BE-JNJFOC-20121102449

PATIENT
  Age: 84 Year
  Sex: Male

DRUGS (9)
  1. XARELTO [Suspect]
     Indication: CEREBROVASCULAR ACCIDENT PROPHYLAXIS
     Route: 048
     Dates: start: 20120903
  2. XARELTO [Suspect]
     Indication: ATRIAL FIBRILLATION
     Route: 048
     Dates: start: 20120903
  3. METFORMAX [Concomitant]
     Route: 065
  4. LIPITOR [Concomitant]
     Route: 065
  5. ALDACTONE A [Concomitant]
     Route: 065
  6. CORDARONE [Concomitant]
     Route: 065
  7. NOBITEN [Concomitant]
     Route: 065
  8. TRITACE [Concomitant]
     Route: 065
  9. TORASEMIDE [Concomitant]
     Route: 065

REACTIONS (2)
  - Death [Fatal]
  - Headache [Unknown]
